FAERS Safety Report 4976120-X (Version None)
Quarter: 2006Q2

REPORT INFORMATION
  Report Type: 
  Country: None (occurrence: None)
  Receive Date: 20060413
  Receipt Date: 20060331
  Transmission Date: 20061013
  Serious: Yes (Hospitalization)
  Sender: FDA-Public Use
  Company Number: 2006RR-01904

PATIENT
  Age: 40 Year
  Sex: Female

DRUGS (3)
  1. AMITRIPTYLINE HCL [Suspect]
     Indication: POSTPARTUM DEPRESSION
     Dosage: 100 X 50 MG, ORAL
     Route: 048
  2. FLUOXETINE [Suspect]
     Indication: POSTPARTUM DEPRESSION
     Dosage: 10 X 20 MG, ORAL
     Route: 048
  3. CLOMIPRAMINE HCL [Suspect]
     Indication: POSTPARTUM DEPRESSION
     Dosage: 13 X 50 MG, ORAL
     Route: 048

REACTIONS (11)
  - ALCOHOL POISONING [None]
  - CONFUSIONAL STATE [None]
  - ELECTROCARDIOGRAM QRS COMPLEX PROLONGED [None]
  - GLASGOW COMA SCALE ABNORMAL [None]
  - GRAND MAL CONVULSION [None]
  - METABOLIC ACIDOSIS [None]
  - MULTIPLE DRUG OVERDOSE [None]
  - MYDRIASIS [None]
  - SINUS TACHYCARDIA [None]
  - SOMNOLENCE [None]
  - VENTRICULAR TACHYCARDIA [None]
